FAERS Safety Report 9927781 (Version 1)
Quarter: 2014Q1

REPORT INFORMATION
  Report Type: Report from Study
  Country: DE (occurrence: DE)
  Receive Date: 20140227
  Receipt Date: 20140227
  Transmission Date: 20141002
  Serious: Yes (Other)
  Sender: FDA-Public Use
  Company Number: DE-ABBVIE-14P-062-1205658-00

PATIENT
  Age: 41 Year
  Sex: Male

DRUGS (5)
  1. KALETRA [Suspect]
     Indication: HIV INFECTION
     Dates: start: 19990812
  2. EPIVIR [Concomitant]
     Indication: HIV INFECTION
  3. ZERIT [Concomitant]
     Indication: HIV INFECTION
  4. NELFINAVIR [Concomitant]
     Indication: HIV INFECTION
  5. COMBIVIR [Concomitant]
     Indication: HIV INFECTION

REACTIONS (2)
  - Kaposi^s sarcoma [Recovered/Resolved]
  - Lipoatrophy [Not Recovered/Not Resolved]
